FAERS Safety Report 17067841 (Version 1)
Quarter: 2019Q4

REPORT INFORMATION
  Report Type: Spontaneous
  Country: US (occurrence: US)
  Receive Date: 20191122
  Receipt Date: 20191122
  Transmission Date: 20200122
  Serious: No
  Sender: FDA-Public Use
  Company Number: NVSC2019US044288

PATIENT
  Sex: Female

DRUGS (1)
  1. MEKINIST [Suspect]
     Active Substance: TRAMETINIB DIMETHYL SULFOXIDE
     Indication: HISTIOCYTIC SARCOMA
     Dosage: 1 MG, QD
     Route: 048
     Dates: start: 20190405, end: 201911

REACTIONS (3)
  - Drug resistance [Unknown]
  - Product use in unapproved indication [Unknown]
  - Drug ineffective [Unknown]
